FAERS Safety Report 9494809 (Version 1)
Quarter: 2013Q3

REPORT INFORMATION
  Report Type: Spontaneous
  Country: US (occurrence: US)
  Receive Date: 20130903
  Receipt Date: 20130903
  Transmission Date: 20140515
  Serious: No
  Sender: FDA-Public Use
  Company Number: US-PFIZER INC-2013250338

PATIENT
  Age: 56 Year
  Sex: Female

DRUGS (12)
  1. GABAPENTIN [Suspect]
     Indication: PAIN
     Dosage: UNK
  2. LIPITOR [Concomitant]
     Dosage: 40 MG, 1X/DAY
     Route: 048
  3. PRILOSEC [Concomitant]
     Dosage: 20 MG, EVERY MORNING BEFORE BREAKFAST
     Route: 048
  4. CYMBALTA [Concomitant]
     Indication: PAIN
     Dosage: 60 MG, 1X/DAY
     Route: 048
  5. LYRICA [Concomitant]
     Indication: PAIN
     Dosage: 1 TAB BID
  6. NORCO [Concomitant]
     Dosage: HYDROCODONE BITARTRATE (7.5 MG), PARACETAMOL (325 MG); EVERY 6 (SIX) HOURS AS NEEDED
     Route: 048
  7. IBUPROFEN [Concomitant]
     Dosage: 800 MG, EVERY 8 (EIGHT) HOURS AS NEEDED
     Route: 048
  8. RELAFEN [Concomitant]
     Indication: PAIN
     Dosage: 750 MG, 2X/DAY
     Route: 048
  9. SAM-E [Concomitant]
     Dosage: 400 MG, UNK
     Route: 048
  10. LEVOTHYROXINE [Concomitant]
     Dosage: 88 UG, EVERY MORNING
     Route: 048
  11. CERTAVITE W/ANTIOXIDANTS [Concomitant]
     Dosage: 1 DF, 1X/DAY
     Route: 048
  12. HYDROCODONE [Concomitant]
     Indication: PAIN

REACTIONS (2)
  - Sedation [Unknown]
  - Drug ineffective [Unknown]
